FAERS Safety Report 5272209-9 (Version None)
Quarter: 2007Q1

REPORT INFORMATION
  Report Type: 
  Country: None (occurrence: None)
  Receive Date: 20070319
  Receipt Date: 20070228
  Transmission Date: 20070707
  Serious: Yes (Other)
  Sender: FDA-Public Use
  Company Number: 238160

PATIENT
  Sex: 0

DRUGS (1)
  1. RANIBIZUMAB (RANBIZUMAB) PWDR + SOLVENT, INJECTION SOLN [Suspect]
     Indication: CHOROIDAL NEOVASCULARISATION

REACTIONS (1)
  - CEREBROVASCULAR ACCIDENT [None]
